FAERS Safety Report 24683671 (Version 1)
Quarter: 2024Q4

REPORT INFORMATION
  Report Type: Spontaneous
  Country: US (occurrence: US)
  Receive Date: 20241202
  Receipt Date: 20241202
  Transmission Date: 20250114
  Serious: No
  Sender: CIPLA
  Company Number: US-CIPLA LTD.-2024US06840

PATIENT

DRUGS (5)
  1. GABAPENTIN [Suspect]
     Active Substance: GABAPENTIN
     Indication: Hypoaesthesia
     Dosage: 100 MILLIGRAM, TID
     Route: 048
     Dates: start: 202312
  2. GABAPENTIN [Suspect]
     Active Substance: GABAPENTIN
     Indication: Paraesthesia
  3. ATENOLOL [Concomitant]
     Active Substance: ATENOLOL
     Indication: Blood pressure measurement
     Dosage: 25 MILLIGRAM, QD
     Route: 065
     Dates: start: 2014
  4. SOMATOSTATIN [Concomitant]
     Active Substance: SOMATOSTATIN
     Indication: Arteriosclerosis
     Dosage: 20 MILLIGRAM, QD
     Route: 065
     Dates: start: 202405
  5. SYMMETREL [Concomitant]
     Active Substance: AMANTADINE HYDROCHLORIDE
     Indication: Seizure
     Dosage: UNK, QD
     Route: 065

REACTIONS (1)
  - Dyspnoea [Recovered/Resolved]

NARRATIVE: CASE EVENT DATE: 20231201
